FAERS Safety Report 7591818-5 (Version None)
Quarter: 2011Q2

REPORT INFORMATION
  Report Type: 
  Country: None (occurrence: None)
  Receive Date: 20110603
  Receipt Date: 20110217
  Transmission Date: 20111010
  Serious: No
  Sender: FDA-Public Use
  Company Number: 2011SP007940

PATIENT
  Age: 24 Year
  Sex: Female

DRUGS (5)
  1. SAPHRIS [Suspect]
     Indication: BIPOLAR DISORDER
     Dosage: 10 MG;HS;SL
     Route: 060
     Dates: start: 20100524
  2. ATIVAN [Concomitant]
  3. DEPLIN [Concomitant]
  4. LITHIUM [Concomitant]
  5. LAMICTAL [Concomitant]

REACTIONS (2)
  - INAPPROPRIATE SCHEDULE OF DRUG ADMINISTRATION [None]
  - APHASIA [None]
